FAERS Safety Report 4918521-1 (Version None)
Quarter: 2006Q1

REPORT INFORMATION
  Report Type: 
  Country: None (occurrence: None)
  Receive Date: 20060212
  Receipt Date: 20060212
  Transmission Date: 20060701
  Serious: Yes (Death)
  Sender: FDA-Public Use
  Company Number: None

PATIENT
  Sex: Male
  Weight: 36.2878 kg

DRUGS (1)
  1. PHENERGAN [Suspect]
     Indication: VOMITING
     Dosage: 37.5 MG ONCE IM; 3-33 MG EVEY 4 HOURS OTHER
     Route: 030
     Dates: start: 20030924, end: 20030924

REACTIONS (1)
  - REYE'S SYNDROME [None]
